FAERS Safety Report 7227574-X (Version None)
Quarter: 2011Q1

REPORT INFORMATION
  Report Type: 
  Country: None (occurrence: None)
  Receive Date: 20110114
  Receipt Date: 20110106
  Transmission Date: 20110831
  Serious: Yes (Other)
  Sender: FDA-Public Use
  Company Number: US-ROCHE-752745

PATIENT
  Sex: Female

DRUGS (1)
  1. BONIVA [Suspect]
     Dosage: START DATE: 08 OR 09
     Route: 065
     Dates: start: 20080101

REACTIONS (2)
  - PAIN IN JAW [None]
  - NEOPLASM MALIGNANT [None]
